FAERS Safety Report 5711229-4 (Version None)
Quarter: 2008Q2

REPORT INFORMATION
  Report Type: 
  Country: None (occurrence: None)
  Receive Date: 20080414
  Receipt Date: 20080327
  Transmission Date: 20081010
  Serious: Yes (Other)
  Sender: FDA-Public Use
  Company Number: 8029721

PATIENT
  Age: 69 Year
  Sex: Female

DRUGS (7)
  1. KEPPRA [Suspect]
     Indication: EPILEPSY
     Dosage: 500 MG 4/D IV
     Route: 042
     Dates: start: 20071022, end: 20071024
  2. KEPPRA [Suspect]
     Indication: MYOCLONUS
     Dosage: 500 MG 4/D IV
     Route: 042
     Dates: start: 20071022, end: 20071024
  3. RANITIDINE [Concomitant]
  4. FRAXIPARINE [Concomitant]
  5. TAZOCIN [Concomitant]
  6. AMUKIN [Concomitant]
  7. DIPRIVAN [Concomitant]

REACTIONS (13)
  - ALANINE AMINOTRANSFERASE INCREASED [None]
  - ANION GAP DECREASED [None]
  - BLOOD GLUCOSE INCREASED [None]
  - CALCIUM IONISED DECREASED [None]
  - ELECTROCARDIOGRAM QT PROLONGED [None]
  - HAEMATOCRIT DECREASED [None]
  - HAEMOGLOBIN DECREASED [None]
  - HAPTOGLOBIN INCREASED [None]
  - HYPOCHROMASIA [None]
  - LYMPHOCYTE PERCENTAGE DECREASED [None]
  - NEUTROPHIL PERCENTAGE INCREASED [None]
  - RED BLOOD CELL COUNT DECREASED [None]
  - WHITE BLOOD CELL COUNT DECREASED [None]
